FAERS Safety Report 25241955 (Version 1)
Quarter: 2025Q2

REPORT INFORMATION
  Report Type: Spontaneous
  Country: IT (occurrence: IT)
  Receive Date: 20250426
  Receipt Date: 20250426
  Transmission Date: 20250716
  Serious: Yes (Death)
  Sender: CADILA
  Company Number: IT-CPL-005241

PATIENT
  Age: 44 Year
  Sex: Female

DRUGS (2)
  1. FLUOXETINE [Suspect]
     Active Substance: FLUOXETINE HYDROCHLORIDE
  2. COCAINE [Suspect]
     Active Substance: COCAINE

REACTIONS (6)
  - Cardiac failure acute [Fatal]
  - Toxicity to various agents [Fatal]
  - Intentional product misuse [Fatal]
  - Incorrect route of product administration [Fatal]
  - Dilated cardiomyopathy [Fatal]
  - Pulmonary oedema [Fatal]
